FAERS Safety Report 10505824 (Version 1)
Quarter: 2014Q4

REPORT INFORMATION
  Report Type: Spontaneous
  Country: US (occurrence: US)
  Receive Date: 20141008
  Receipt Date: 20141008
  Transmission Date: 20150528
  Serious: No
  Sender: FDA-Public Use
  Company Number: US-SA-2013SA128826

PATIENT

DRUGS (5)
  1. PREDNISOLONE. [Suspect]
     Active Substance: PREDNISOLONE
  2. ARAVA [Suspect]
     Active Substance: LEFLUNOMIDE
  3. METHOTREXATE [Suspect]
     Active Substance: METHOTREXATE
  4. CIMZIA [Suspect]
     Active Substance: CERTOLIZUMAB PEGOL
  5. FOLATE SODIUM [Suspect]
     Active Substance: FOLATE SODIUM

REACTIONS (2)
  - Pain in extremity [Unknown]
  - Feeling hot [Unknown]
